FAERS Safety Report 4269366-X (Version None)
Quarter: 2004Q1

REPORT INFORMATION
  Report Type: 
  Country: None (occurrence: None)
  Receive Date: 20040113
  Receipt Date: 20031222
  Transmission Date: 20041129
  Serious: Yes (Hospitalization)
  Sender: FDA-Public Use
  Company Number: PHNU2003DE04466

PATIENT
  Age: 56 Year
  Sex: Female

DRUGS (2)
  1. TRILEPTAL [Suspect]
     Indication: EPILEPSY
     Dosage: 1500 MG/D
     Dates: start: 20021101, end: 20031001
  2. TRILEPTAL [Suspect]
     Dosage: 600 MG/D
     Dates: start: 20031001

REACTIONS (6)
  - CATARACT [None]
  - CONVULSION [None]
  - DIPLOPIA [None]
  - ELECTROENCEPHALOGRAM ABNORMAL [None]
  - INFLUENZA LIKE ILLNESS [None]
  - VISUAL ACUITY REDUCED [None]
